FAERS Safety Report 11758889 (Version 1)
Quarter: 2015Q4

REPORT INFORMATION
  Report Type: Spontaneous
  Country: US (occurrence: US)
  Receive Date: 20151120
  Receipt Date: 20151120
  Transmission Date: 20160304
  Serious: Yes (Other)
  Sender: FDA-Public Use
  Company Number: US-SMITH AND NEPHEW, INC-2015SMT00531

PATIENT
  Age: 79 Year
  Sex: Female

DRUGS (1)
  1. REGRANEX [Suspect]
     Active Substance: BECAPLERMIN
     Indication: WOUND
     Dosage: UNK
     Dates: end: 20151112

REACTIONS (3)
  - Asthenia [None]
  - Drug ineffective for unapproved indication [Unknown]
  - Toe amputation [Unknown]

NARRATIVE: CASE EVENT DATE: 20151112
